FAERS Safety Report 12123892 (Version 4)
Quarter: 2016Q2

REPORT INFORMATION
  Report Type: Spontaneous
  Country: US (occurrence: US)
  Receive Date: 20160229
  Receipt Date: 20160420
  Transmission Date: 20160815
  Serious: Yes (Death, Hospitalization)
  Sender: FDA-Public Use
  Company Number: US-UNITED THERAPEUTICS-UNT-2016-002705

PATIENT
  Age: 53 Year
  Sex: Female
  Weight: 53.52 kg

DRUGS (1)
  1. REMODULIN [Suspect]
     Active Substance: TREPROSTINIL
     Indication: PULMONARY HYPERTENSION
     Dosage: 0.053 ?G/KG, CONTINUING
     Route: 041
     Dates: start: 20130226

REACTIONS (2)
  - Acute kidney injury [Unknown]
  - Hepatorenal failure [Fatal]

NARRATIVE: CASE EVENT DATE: 201602
